FAERS Safety Report 20901735 (Version 1)
Quarter: 2022Q2

REPORT INFORMATION
  Report Type: Spontaneous
  Country: US (occurrence: US)
  Receive Date: 20220601
  Receipt Date: 20220601
  Transmission Date: 20220720
  Serious: No
  Sender: FDA-Public Use
  Company Number: US-PFIZER INC-202200767333

PATIENT

DRUGS (3)
  1. FENTANYL CITRATE [Interacting]
     Active Substance: FENTANYL CITRATE
     Dosage: UNK
  2. SODIUM BICARBONATE [Interacting]
     Active Substance: SODIUM BICARBONATE
     Dosage: UNK
  3. HALDOL [Interacting]
     Active Substance: HALOPERIDOL
     Dosage: UNK

REACTIONS (1)
  - Drug interaction [Unknown]
